FAERS Safety Report 17664813 (Version 1)
Quarter: 2020Q2

REPORT INFORMATION
  Report Type: Spontaneous
  Country: US (occurrence: US)
  Receive Date: 20200414
  Receipt Date: 20200414
  Transmission Date: 20200713
  Serious: No
  Sender: FDA-Public Use
  Company Number: US-PFIZER INC-2020148628

PATIENT
  Age: 50 Year
  Sex: Female

DRUGS (1)
  1. IBRANCE [Suspect]
     Active Substance: PALBOCICLIB
     Indication: BONE CANCER
     Dosage: 125 MG, DAILY (FOR 21 DAYS, THEN 7 DAYS OFF)
     Route: 048

REACTIONS (3)
  - Rash [Unknown]
  - Off label use [Unknown]
  - Product use in unapproved indication [Unknown]
